FAERS Safety Report 6262017-4 (Version None)
Quarter: 2009Q3

REPORT INFORMATION
  Report Type: 
  Country: None (occurrence: None)
  Receive Date: 20090707
  Receipt Date: 20090707
  Transmission Date: 20100115
  Serious: Yes (Other)
  Sender: FDA-Public Use
  Company Number: None

PATIENT
  Sex: Male

DRUGS (2)
  1. AMPHETAMINE AND DEXTROAMPHETAMINE SALTS [Suspect]
     Indication: ATTENTION DEFICIT/HYPERACTIVITY DISORDER
     Dosage: 1 DAILY PO
     Route: 048
     Dates: start: 20090627, end: 20090627
  2. ADDERALL XR 5 [Suspect]

REACTIONS (6)
  - AGITATION [None]
  - FEAR [None]
  - HALLUCINATION, VISUAL [None]
  - HEART RATE INCREASED [None]
  - NIGHTMARE [None]
  - PRODUCT SUBSTITUTION ISSUE [None]
